FAERS Safety Report 7200624-2 (Version None)
Quarter: 2010Q4

REPORT INFORMATION
  Report Type: 
  Country: None (occurrence: None)
  Receive Date: 20101228
  Receipt Date: 20101214
  Transmission Date: 20110411
  Serious: Yes (Hospitalization, Other)
  Sender: FDA-Public Use
  Company Number: AU-ELI_LILLY_AND_COMPANY-AU201012004447

PATIENT
  Age: 38 Year
  Sex: Female

DRUGS (3)
  1. OLANZAPINE [Suspect]
     Dosage: 10 MG, DAILY (1/D)
     Dates: start: 20090101
  2. OLANZAPINE [Suspect]
     Dosage: 5 MG, DAILY (1/D)
  3. PAROXETINE HCL [Concomitant]
     Dosage: 20 MG, EACH MORNING

REACTIONS (8)
  - DRUG INTERACTION [None]
  - DYSPHAGIA [None]
  - FALL [None]
  - LIVER FUNCTION TEST ABNORMAL [None]
  - NEUROLEPTIC MALIGNANT SYNDROME [None]
  - PARANOIA [None]
  - SALIVARY HYPERSECRETION [None]
  - SEROTONIN SYNDROME [None]
